FAERS Safety Report 12936120 (Version 1)
Quarter: 2016Q4

REPORT INFORMATION
  Report Type: Spontaneous
  Country: DE (occurrence: DE)
  Receive Date: 20161114
  Receipt Date: 20161114
  Transmission Date: 20170207
  Serious: Yes (Other)
  Sender: FDA-Public Use
  Company Number: PHHY2016DE152560

PATIENT
  Sex: Female

DRUGS (1)
  1. COSENTYX [Suspect]
     Active Substance: SECUKINUMAB
     Indication: PSORIASIS
     Dosage: 300MG, QW
     Route: 065

REACTIONS (4)
  - Anal fungal infection [Unknown]
  - Fungal infection [Unknown]
  - Psoriasis [Unknown]
  - Oral fungal infection [Unknown]
